FAERS Safety Report 10287064 (Version 1)
Quarter: 2014Q3

REPORT INFORMATION
  Report Type: Spontaneous
  Country: US (occurrence: US)
  Receive Date: 20140709
  Receipt Date: 20140709
  Transmission Date: 20150326
  Serious: Yes (Death, Hospitalization, Other)
  Sender: FDA-Public Use
  Company Number: US-CELGENEUS-163-21880-14070731

PATIENT
  Age: 72 Year
  Sex: Male
  Weight: 111.23 kg

DRUGS (1)
  1. REVLIMID [Suspect]
     Active Substance: LENALIDOMIDE
     Indication: PLASMA CELL MYELOMA
     Dosage: 25 MILLIGRAM
     Route: 048
     Dates: start: 201405, end: 20140616

REACTIONS (4)
  - Heart rate increased [Unknown]
  - Lung infection [Unknown]
  - Plasma cell myeloma [Fatal]
  - Localised infection [Recovered/Resolved]

NARRATIVE: CASE EVENT DATE: 2014
